FAERS Safety Report 4313779-4 (Version None)
Quarter: 2004Q1

REPORT INFORMATION
  Report Type: 
  Country: None (occurrence: None)
  Receive Date: 20040305
  Receipt Date: 20040203
  Transmission Date: 20041129
  Serious: No
  Sender: FDA-Public Use
  Company Number: A02200400403

PATIENT

DRUGS (2)
  1. ARIXTRA [Suspect]
     Indication: DEEP VENOUS THROMBOSIS PROPHYLAXIS
     Dosage: 2.5 MG OD SUBCUTANEOUS
     Route: 058
     Dates: start: 20030101, end: 20030101
  2. FERROUS SULFATE TAB [Concomitant]

REACTIONS (1)
  - GASTRIC HAEMORRHAGE [None]
